FAERS Safety Report 7941146-0 (Version None)
Quarter: 2011Q4

REPORT INFORMATION
  Report Type: 
  Country: None (occurrence: None)
  Receive Date: 20111128
  Receipt Date: 20111121
  Transmission Date: 20120403
  Serious: Yes (Life-Threatening)
  Sender: FDA-Public Use
  Company Number: ZA-B.I. PHARMACEUTICALS,INC./RIDGEFIELD-2011-AP-00657ZA

PATIENT
  Age: 81 Year
  Sex: Male

DRUGS (1)
  1. PRADAXA [Suspect]
     Indication: HIP SURGERY
     Dosage: 220 MG
     Route: 048
     Dates: start: 20111012

REACTIONS (1)
  - MYOCARDIAL INFARCTION [None]
